FAERS Safety Report 9430110 (Version 2)
Quarter: 2013Q3

REPORT INFORMATION
  Report Type: Spontaneous
  Country: CA (occurrence: None)
  Receive Date: 20130726
  Receipt Date: 20130830
  Transmission Date: 20140515
  Serious: Yes (Disabling)
  Sender: FDA-Public Use
  Company Number: CA-012323

PATIENT
  Age: 42 Year
  Sex: Female
  Weight: 75.75 kg

DRUGS (2)
  1. MENOPUR [Suspect]
     Indication: PRODUCT USED FOR UNKNOWN INDICATION
     Route: 058
  2. PUREGON [Suspect]
     Dates: start: 201105, end: 201109

REACTIONS (8)
  - Alopecia [None]
  - Frequent bowel movements [None]
  - Hypothyroidism [None]
  - Irritability [None]
  - Muscular weakness [None]
  - Tachycardia [None]
  - Weight decreased [None]
  - Feeling hot [None]
